FAERS Safety Report 9210950 (Version 1)
Quarter: 2013Q2

REPORT INFORMATION
  Report Type: Spontaneous
  Country: US (occurrence: US)
  Receive Date: 20130404
  Receipt Date: 20130404
  Transmission Date: 20140414
  Serious: Yes (Hospitalization, Other)
  Sender: FDA-Public Use
  Company Number: CHPA2013US005588

PATIENT
  Age: 60 Year
  Sex: Female

DRUGS (1)
  1. BENEFIBER W/ WHEAT DEXTRIN [Suspect]
     Indication: NUTRITIONAL SUPPLEMENTATION
     Dosage: 1 DF, BID
     Route: 048
     Dates: end: 201104

REACTIONS (6)
  - Amnesia [Not Recovered/Not Resolved]
  - Rhinorrhoea [Unknown]
  - Hypersomnia [Recovered/Resolved]
  - Hypoacusis [Not Recovered/Not Resolved]
  - Meningitis [Unknown]
  - Underdose [Unknown]
